FAERS Safety Report 8275860-7 (Version None)
Quarter: 2012Q2

REPORT INFORMATION
  Report Type: 
  Country: None (occurrence: None)
  Receive Date: 20120410
  Receipt Date: 20120410
  Transmission Date: 20120825
  Serious: No
  Sender: FDA-Public Use
  Company Number: None

PATIENT
  Age: 50 Year
  Sex: Female

DRUGS (1)
  1. VITAMIN D CAP [Suspect]

REACTIONS (3)
  - BLOOD CALCIUM INCREASED [None]
  - CONSTIPATION [None]
  - MYALGIA [None]
